FAERS Safety Report 5958378-3 (Version None)
Quarter: 2008Q4

REPORT INFORMATION
  Report Type: 
  Country: None (occurrence: None)
  Receive Date: 20081119
  Receipt Date: 20070410
  Transmission Date: 20090506
  Serious: Yes (Other)
  Sender: FDA-Public Use
  Company Number: US-ASTRAZENECA-2007UW02089

PATIENT
  Age: 18107 Day
  Sex: Male
  Weight: 121.6 kg

DRUGS (3)
  1. SEROQUEL [Suspect]
     Indication: BIPOLAR DISORDER
     Route: 048
     Dates: start: 20010101
  2. SEROQUEL [Suspect]
     Indication: BIPOLAR I DISORDER
     Route: 048
     Dates: start: 20010101
  3. SEROQUEL [Suspect]
     Indication: INSOMNIA
     Route: 048
     Dates: start: 20010101

REACTIONS (34)
  - APPENDICITIS [None]
  - BACK INJURY [None]
  - BALANOPOSTHITIS [None]
  - BLOOD CHOLESTEROL INCREASED [None]
  - CARPAL TUNNEL SYNDROME [None]
  - CELLULITIS [None]
  - CEREBROVASCULAR ACCIDENT [None]
  - CHEST PAIN [None]
  - DRUG DEPENDENCE [None]
  - DRUG HYPERSENSITIVITY [None]
  - ERECTILE DYSFUNCTION [None]
  - EXCORIATION [None]
  - GASTRIC DISORDER [None]
  - GASTROOESOPHAGEAL REFLUX DISEASE [None]
  - HEPATITIS B [None]
  - HEPATITIS C [None]
  - HYPERTENSION [None]
  - LEUKOCYTOSIS [None]
  - LIMB INJURY [None]
  - NAUSEA [None]
  - NEUROGENIC BLADDER [None]
  - OBESITY [None]
  - OVERDOSE [None]
  - PAIN IN EXTREMITY [None]
  - POLLAKIURIA [None]
  - PSYCHOTIC DISORDER [None]
  - RADIUS FRACTURE [None]
  - SLEEP APNOEA SYNDROME [None]
  - TESTICULAR PAIN [None]
  - TYPE 1 DIABETES MELLITUS [None]
  - URINARY TRACT DISORDER [None]
  - URINARY TRACT INFECTION [None]
  - VENOUS INSUFFICIENCY [None]
  - VOMITING [None]
